FAERS Safety Report 10133520 (Version 1)
Quarter: 2014Q2

REPORT INFORMATION
  Report Type: Spontaneous
  Country: ES (occurrence: ES)
  Receive Date: 20140428
  Receipt Date: 20140428
  Transmission Date: 20141212
  Serious: Yes (Other)
  Sender: FDA-Public Use
  Company Number: ES-BRISTOL-MYERS SQUIBB COMPANY-20672945

PATIENT
  Age: 30 Year
  Sex: Female

DRUGS (3)
  1. ABILIFY TABS 5 MG [Suspect]
     Indication: ANXIETY
     Dosage: DOSE INCREASED TO 10MG/DAY
     Route: 048
  2. MAGNESIUM [Concomitant]
     Dosage: CAPSULE
     Route: 048
  3. GINKGO BILOBA [Concomitant]
     Dosage: CAPSULE
     Route: 048

REACTIONS (7)
  - Psychotic disorder [Unknown]
  - Food craving [Unknown]
  - Amnesia [Unknown]
  - Asthenia [Unknown]
  - Dizziness [Unknown]
  - Malaise [Unknown]
  - Off label use [Unknown]
